FAERS Safety Report 9239671 (Version 4)
Quarter: 2013Q2

REPORT INFORMATION
  Report Type: Spontaneous
  Country: US (occurrence: US)
  Receive Date: 20130418
  Receipt Date: 20130603
  Transmission Date: 20140414
  Serious: Yes (Other)
  Sender: FDA-Public Use
  Company Number: US-PFIZER INC-2013119901

PATIENT
  Age: 61 Year
  Sex: Female

DRUGS (6)
  1. LYRICA [Suspect]
     Indication: TRIGEMINAL NEURALGIA
     Dosage: 150 MG, 3X/DAY
     Route: 048
     Dates: start: 20031029
  2. LYRICA [Suspect]
     Indication: PAIN
  3. PROPRANOLOL [Concomitant]
     Dosage: UNK
  4. KLONOPIN [Concomitant]
     Dosage: UNK
  5. ZOLOFT [Concomitant]
     Dosage: UNK
  6. ESTRADIOL [Concomitant]
     Dosage: UNK

REACTIONS (4)
  - Cerebrovascular accident [Unknown]
  - Anxiety [Unknown]
  - Malaise [Unknown]
  - Headache [Unknown]
